FAERS Safety Report 8321396-4 (Version None)
Quarter: 2012Q2

REPORT INFORMATION
  Report Type: 
  Country: None (occurrence: None)
  Receive Date: 20120430
  Receipt Date: 20120416
  Transmission Date: 20120825
  Serious: Yes (Hospitalization, Disabling, Other)
  Sender: FDA-Public Use
  Company Number: US-ASTELLAS-2011US007356

PATIENT
  Sex: Male
  Weight: 42 kg

DRUGS (8)
  1. ELIDEL [Interacting]
     Indication: ECZEMA
     Dosage: 1 %, UNKNOWN/D
     Route: 065
  2. CUTIVATE [Concomitant]
     Indication: DERMATITIS ATOPIC
     Dosage: UNK
     Route: 061
  3. PROTOPIC [Suspect]
     Indication: DERMATITIS ATOPIC
     Dosage: 0.1 %, BID PRN
     Route: 061
     Dates: start: 20090102
  4. BACTROBAN [Concomitant]
     Indication: DERMATITIS ATOPIC
     Dosage: UNK
     Route: 065
  5. LIDEX [Concomitant]
     Indication: DERMATITIS ATOPIC
     Dosage: UNK
     Route: 061
  6. PROTOPIC [Suspect]
     Indication: ECZEMA
     Dosage: 0.1 %, BID PRN
     Route: 061
     Dates: start: 20040101, end: 20050101
  7. ALLEGRA [Concomitant]
     Indication: PRODUCT USED FOR UNKNOWN INDICATION
     Dosage: 30 MG, UNKNOWN/D
     Route: 048
  8. PROTOPIC [Suspect]
     Dosage: 0.1 %, BID
     Route: 061

REACTIONS (43)
  - OFF LABEL USE [None]
  - SPLINTER [None]
  - SMALL INTESTINAL BACTERIAL OVERGROWTH [None]
  - VIRAL INFECTION [None]
  - GASTROOESOPHAGEAL REFLUX DISEASE [None]
  - TYMPANIC MEMBRANE PERFORATION [None]
  - CERUMEN IMPACTION [None]
  - TONSILLITIS [None]
  - EMBOLISM VENOUS [None]
  - BURKITT'S LYMPHOMA STAGE II [None]
  - OBSESSIVE-COMPULSIVE DISORDER [None]
  - DEPRESSION [None]
  - NASAL ABSCESS [None]
  - HEPATIC STEATOSIS [None]
  - PLEURAL EFFUSION [None]
  - PHARYNGITIS STREPTOCOCCAL [None]
  - PNEUMONIA BACTERIAL [None]
  - HEADACHE [None]
  - MELANOCYTIC NAEVUS [None]
  - AUTISM [None]
  - ORTHOSTATIC HYPOTENSION [None]
  - LIVER DISORDER [None]
  - OROPHARYNGEAL PAIN [None]
  - SYNOVIAL CYST [None]
  - URINE OUTPUT DECREASED [None]
  - DYSGRAPHIA [None]
  - ABDOMINAL ABSCESS [None]
  - CONSTIPATION [None]
  - TOOTH EXTRACTION [None]
  - RADIUS FRACTURE [None]
  - FATIGUE [None]
  - WRIST FRACTURE [None]
  - UPPER RESPIRATORY TRACT INFECTION [None]
  - BRONCHITIS [None]
  - ABDOMINAL PAIN UPPER [None]
  - BRONCHIOLITIS [None]
  - INFECTIOUS PERITONITIS [None]
  - FALL [None]
  - LOCALISED INTRAABDOMINAL FLUID COLLECTION [None]
  - EXCESSIVE GRANULATION TISSUE [None]
  - MUSCLE STRAIN [None]
  - OTITIS EXTERNA [None]
  - OTITIS MEDIA ACUTE [None]
